FAERS Safety Report 14020233 (Version 1)
Quarter: 2017Q3

REPORT INFORMATION
  Report Type: Spontaneous
  Country: NL (occurrence: NL)
  Receive Date: 20170928
  Receipt Date: 20170928
  Transmission Date: 20171128
  Serious: Yes (Other)
  Sender: FDA-Public Use
  Company Number: NL-PFIZER INC-2397696

PATIENT
  Age: 67 Year
  Sex: Female

DRUGS (3)
  1. ROPIVACAINE HYDROCHLORIDE. [Suspect]
     Active Substance: ROPIVACAINE HYDROCHLORIDE
     Indication: SPINAL ANAESTHESIA
     Dosage: 100 ML, 50ML. 50ML FOR A TOTAL OF 400 MG
     Route: 008
  2. EPINEPHRINE. [Suspect]
     Active Substance: EPINEPHRINE
     Dosage: 5UG/ML
  3. BUPIVACAINE/GLUCOSE [Concomitant]
     Indication: SPINAL ANAESTHESIA
     Dosage: 11 MG, UNK
     Route: 037

REACTIONS (5)
  - Clonic convulsion [Recovered/Resolved]
  - Seizure [Recovered/Resolved]
  - Toxicity to various agents [Recovered/Resolved]
  - Heart rate increased [Recovered/Resolved]
  - Atrial fibrillation [Recovered/Resolved]
